FAERS Safety Report 4982707-0 (Version None)
Quarter: 2006Q2

REPORT INFORMATION
  Report Type: 
  Country: None (occurrence: None)
  Receive Date: 20060425
  Receipt Date: 20050929
  Transmission Date: 20061013
  Serious: Yes (Hospitalization, Other)
  Sender: FDA-Public Use
  Company Number: US-MERCK-0510USA01351

PATIENT
  Age: 67 Year
  Sex: Female
  Weight: 91 kg

DRUGS (10)
  1. VIOXX [Suspect]
     Indication: ARTHRITIS
     Route: 048
     Dates: start: 19990801, end: 20040101
  2. AMITRIPTYLINE HYDROCHLORIDE [Concomitant]
     Route: 065
  3. NIFEDIPINE [Concomitant]
     Route: 065
  4. LABETALOL HYDROCHLORIDE [Concomitant]
     Route: 065
  5. PREVACID [Concomitant]
     Route: 065
  6. FUROSEMIDE [Concomitant]
     Route: 065
  7. PREMARIN [Concomitant]
     Route: 065
  8. POTASSIUM CHLORIDE [Concomitant]
     Route: 065
  9. PREDNISONE [Concomitant]
     Route: 065
  10. METFORMIN HYDROCHLORIDE [Concomitant]
     Route: 065

REACTIONS (7)
  - ANGIONEUROTIC OEDEMA [None]
  - BACK PAIN [None]
  - CONNECTIVE TISSUE INFLAMMATION [None]
  - DIABETES MELLITUS [None]
  - INFLAMMATION [None]
  - LUMBAR SPINAL STENOSIS [None]
  - MYOCARDIAL INFARCTION [None]
